FAERS Safety Report 9324384 (Version 1)
Quarter: 2013Q2

REPORT INFORMATION
  Report Type: Spontaneous
  Country: US (occurrence: US)
  Receive Date: 20130603
  Receipt Date: 20130603
  Transmission Date: 20140414
  Serious: No
  Sender: FDA-Public Use
  Company Number: US-BAYER-2013-066766

PATIENT
  Age: 85 Year
  Sex: Male
  Weight: 90.7 kg

DRUGS (3)
  1. PHILLIPS^ MILK OF MAGNESIA [Suspect]
     Indication: CONSTIPATION
     Dosage: 1 TBSP, QD
     Route: 048
  2. MIRALAX [Concomitant]
  3. SPIRONOLACTONE [Concomitant]

REACTIONS (2)
  - Wrong technique in drug usage process [None]
  - Incorrect drug administration duration [None]
